FAERS Safety Report 20947740 (Version 1)
Quarter: 2022Q2

REPORT INFORMATION
  Report Type: Other
  Country: US (occurrence: None)
  Receive Date: 20220611
  Receipt Date: 20220611
  Transmission Date: 20220721
  Serious: Yes (Other)
  Sender: FDA-Public Use
  Company Number: US-ROCHE-3113456

PATIENT
  Sex: Male

DRUGS (10)
  1. ESBRIET [Suspect]
     Active Substance: PIRFENIDONE
     Indication: Pulmonary fibrosis
     Dosage: TAKE 3 TABLET(S) BY MOUTH 3 TIMES A DAY WITH FOOD
     Route: 048
  2. ESBRIET [Suspect]
     Active Substance: PIRFENIDONE
     Indication: Hypersensitivity pneumonitis
  3. ESBRIET [Suspect]
     Active Substance: PIRFENIDONE
     Indication: Asthma
  4. ESBRIET [Suspect]
     Active Substance: PIRFENIDONE
     Indication: Acute respiratory failure
  5. ESBRIET [Suspect]
     Active Substance: PIRFENIDONE
     Indication: Oxygen therapy
  6. ESBRIET [Suspect]
     Active Substance: PIRFENIDONE
     Indication: Haemorrhage
  7. ESBRIET [Suspect]
     Active Substance: PIRFENIDONE
     Indication: Wheelchair user
  8. ESBRIET [Suspect]
     Active Substance: PIRFENIDONE
     Indication: Somnolence
  9. ESBRIET [Suspect]
     Active Substance: PIRFENIDONE
     Indication: Snoring
  10. ESBRIET [Suspect]
     Active Substance: PIRFENIDONE
     Indication: Pulmonary function test abnormal

REACTIONS (1)
  - Blindness [Unknown]
